FAERS Safety Report 4558856-8 (Version None)
Quarter: 2005Q1

REPORT INFORMATION
  Report Type: 
  Country: None (occurrence: None)
  Receive Date: 20050121
  Receipt Date: 20041104
  Transmission Date: 20050727
  Serious: Yes (Death, Hospitalization)
  Sender: FDA-Public Use
  Company Number: JP-MERCK-0411USA01566

PATIENT
  Age: 89 Year
  Sex: Male
  Weight: 46 kg

DRUGS (4)
  1. DECADRON [Suspect]
     Indication: PROSTATE CANCER
     Route: 048
     Dates: start: 20011221, end: 20020315
  2. PURSENNID [Concomitant]
     Indication: CONSTIPATION
     Route: 048
     Dates: start: 19990316, end: 20020719
  3. PEPCID [Concomitant]
     Indication: ANTACID THERAPY
     Route: 048
     Dates: start: 20020201, end: 20020315
  4. HARNAL [Concomitant]
     Indication: BENIGN PROSTATIC HYPERPLASIA
     Route: 048
     Dates: start: 19990316, end: 20020719

REACTIONS (3)
  - GASTRIC ULCER HAEMORRHAGE [None]
  - PALPITATIONS [None]
  - PROSTATE CANCER [None]
